FAERS Safety Report 17997334 (Version 2)
Quarter: 2020Q4

REPORT INFORMATION
  Report Type: Spontaneous
  Country: US (occurrence: US)
  Receive Date: 20200708
  Receipt Date: 20201008
  Transmission Date: 20210113
  Serious: No
  Sender: FDA-Public Use
  Company Number: US-SUN PHARMACEUTICAL INDUSTRIES LTD-2020R1-244253

PATIENT
  Sex: Female

DRUGS (1)
  1. XELPROS [Suspect]
     Active Substance: LATANOPROST
     Indication: PRODUCT USED FOR UNKNOWN INDICATION
     Dosage: UNK
     Route: 065
     Dates: start: 202003

REACTIONS (3)
  - Dyspnoea [Unknown]
  - Migraine [Unknown]
  - Application site pain [Unknown]
